FAERS Safety Report 8412136-9 (Version None)
Quarter: 2012Q2

REPORT INFORMATION
  Report Type: 
  Country: None (occurrence: None)
  Receive Date: 20120605
  Receipt Date: 20120508
  Transmission Date: 20120825
  Serious: No
  Sender: FDA-Public Use
  Company Number: US-AMGEN-USASP2012019312

PATIENT
  Age: 36 Year
  Sex: Female
  Weight: 45.351 kg

DRUGS (4)
  1. PREDNISONE [Concomitant]
     Dosage: 5 MG, UNK
  2. ENBREL [Suspect]
     Indication: RHEUMATOID ARTHRITIS
     Dosage: 50 MG, QWK
     Dates: start: 20120306
  3. METHOTREXATE [Concomitant]
     Dosage: 17.5 MG, UNK
  4. FOLIC ACID [Concomitant]
     Dosage: 3 MG, UNK

REACTIONS (5)
  - INJECTION SITE SWELLING [None]
  - INJECTION SITE ERYTHEMA [None]
  - INJECTION SITE PRURITUS [None]
  - INJECTION SITE REACTION [None]
  - INJECTION SITE RASH [None]
